FAERS Safety Report 8032322-X (Version None)
Quarter: 2012Q1

REPORT INFORMATION
  Report Type: 
  Country: None (occurrence: None)
  Receive Date: 20120110
  Receipt Date: 20111228
  Transmission Date: 20120608
  Serious: Yes (Hospitalization)
  Sender: FDA-Public Use
  Company Number: JP-SHIRE-ALL1-2011-05179

PATIENT
  Age: 59 Year
  Sex: Female

DRUGS (19)
  1. LANTHANUM CARBONATE [Suspect]
     Indication: HYPERPHOSPHATAEMIA
     Dosage: 750 MG, OTHER (IMMEDIATELY AFTER MEALS)
     Route: 048
     Dates: start: 20090424
  2. OXAROL [Concomitant]
     Indication: PRODUCT USED FOR UNKNOWN INDICATION
     Dosage: 15 ?G, 1X/WEEK
     Route: 042
     Dates: end: 20100203
  3. OXAROL [Concomitant]
     Dosage: 7.5 ?G, 1X/WEEK
     Route: 042
     Dates: start: 20100217
  4. RENAGEL                            /01459902/ [Concomitant]
     Indication: HYPERPHOSPHATAEMIA
     Dosage: 2250 MG, UNKNOWN
     Route: 048
     Dates: start: 20050418
  5. ASPIRIN [Concomitant]
     Indication: PROPHYLAXIS
     Dosage: 100 MG, UNKNOWN
     Route: 048
  6. EPOGIN [Concomitant]
     Indication: PRODUCT USED FOR UNKNOWN INDICATION
     Dosage: 4500 ?G, 1X/WEEK
     Route: 042
  7. PRECIPITATED CALCIUM CARBONATE [Concomitant]
     Indication: HYPERPHOSPHATAEMIA
     Dosage: 1500 MG, IMMEDIATELY AFTER MEALS
     Route: 048
     Dates: start: 20100716, end: 20100805
  8. ROCALTROL [Concomitant]
     Indication: PRODUCT USED FOR UNKNOWN INDICATION
     Dosage: 1 ?G, 1X/WEEK
     Route: 042
     Dates: start: 20080222, end: 20090710
  9. ROCALTROL [Concomitant]
     Dosage: 1.5 ?G, 1X/WEEK
     Route: 042
     Dates: start: 20090710, end: 20091211
  10. CANDESARTAN CILEXETIL [Concomitant]
     Indication: PRODUCT USED FOR UNKNOWN INDICATION
     Dosage: 2 MG, UNKNOWN
     Route: 048
  11. PERYCIT [Concomitant]
     Indication: HYPERPHOSPHATAEMIA
     Dosage: 750 MG, UNKNOWN
     Route: 048
     Dates: start: 20041213
  12. CINACALCET HYDROCHLORIDE [Concomitant]
     Indication: HYPERPARATHYROIDISM SECONDARY
     Dosage: 25 MG, UNKNOWN
     Route: 048
     Dates: start: 20080211, end: 20091112
  13. CALCIUM ACETATE [Concomitant]
     Indication: HYPERPHOSPHATAEMIA
     Dosage: 1500 MG, UNKNOWN
     Route: 048
     Dates: start: 20060814, end: 20090423
  14. PURSENNID                          /00571902/ [Concomitant]
     Indication: PRODUCT USED FOR UNKNOWN INDICATION
     Dosage: 36 MG, UNKNOWN
     Route: 048
  15. LAXOBERON [Concomitant]
     Indication: PRODUCT USED FOR UNKNOWN INDICATION
     Dosage: 7.5 MG, UNKNOWN
     Route: 048
  16. CINACALCET HYDROCHLORIDE [Concomitant]
     Dosage: 50 MG, UNKNOWN
     Route: 048
     Dates: start: 20091113, end: 20100610
  17. OXAROL [Concomitant]
     Dosage: 7.5 ?G, 1X/WEEK
     Route: 042
     Dates: start: 20100927
  18. CINACALCET HYDROCHLORIDE [Concomitant]
     Dosage: 75 MG, UNKNOWN
     Route: 048
     Dates: start: 20100611
  19. OXAROL [Concomitant]
     Dosage: 15 ?G, 1X/WEEK
     Route: 042
     Dates: start: 20100623, end: 20100924

REACTIONS (1)
  - LARGE INTESTINE PERFORATION [None]
